FAERS Safety Report 5464285-5 (Version None)
Quarter: 2007Q3

REPORT INFORMATION
  Report Type: 
  Country: None (occurrence: None)
  Receive Date: 20070921
  Receipt Date: 20070910
  Transmission Date: 20080115
  Serious: Yes (Death, Other)
  Sender: FDA-Public Use
  Company Number: B0479920A

PATIENT
  Age: 28 Year
  Sex: Female
  Weight: 65 kg

DRUGS (6)
  1. LAMOTRIGINE [Suspect]
     Indication: EPILEPSY
     Dosage: 25MG TWICE PER DAY
     Route: 048
     Dates: start: 20070125, end: 20070207
  2. FOLIC ACID [Concomitant]
     Dosage: 5MG PER DAY
     Route: 048
     Dates: start: 20010101
  3. VALPROATE SODIUM [Concomitant]
     Indication: EPILEPSY
     Dosage: 1000MG PER DAY
     Route: 048
     Dates: start: 19960101
  4. FENOCIN [Concomitant]
     Indication: CONTRACEPTION
  5. CEFACLOR [Concomitant]
     Route: 065
  6. BCG [Concomitant]

REACTIONS (38)
  - ABDOMINAL TENDERNESS [None]
  - AGITATION [None]
  - ALANINE AMINOTRANSFERASE INCREASED [None]
  - APHTHOUS STOMATITIS [None]
  - ASPARTATE AMINOTRANSFERASE INCREASED [None]
  - AXILLARY PAIN [None]
  - BLISTER [None]
  - BLOOD ALKALINE PHOSPHATASE INCREASED [None]
  - BLOOD GLUCOSE DECREASED [None]
  - COAGULOPATHY [None]
  - DIARRHOEA [None]
  - FALL [None]
  - GAMMA-GLUTAMYLTRANSFERASE INCREASED [None]
  - GROIN PAIN [None]
  - HAEMATEMESIS [None]
  - HEPATIC FAILURE [None]
  - HEPATOMEGALY [None]
  - HYPERVENTILATION [None]
  - HYPOTENSION [None]
  - HYPOTHERMIA [None]
  - INTRACRANIAL PRESSURE INCREASED [None]
  - JAUNDICE [None]
  - LACTIC ACIDOSIS [None]
  - LIVER FUNCTION TEST ABNORMAL [None]
  - LYMPHADENOPATHY [None]
  - MALAISE [None]
  - MEAN ARTERIAL PRESSURE INCREASED [None]
  - MYOCLONUS [None]
  - NECK PAIN [None]
  - NIGHT SWEATS [None]
  - PHARYNGOLARYNGEAL PAIN [None]
  - RASH MACULO-PAPULAR [None]
  - RASH MORBILLIFORM [None]
  - SOMNOLENCE [None]
  - TACHYCARDIA [None]
  - UNRESPONSIVE TO STIMULI [None]
  - VOMITING [None]
  - WHITE BLOOD CELL COUNT INCREASED [None]
